FAERS Safety Report 9339175 (Version 1)
Quarter: 2013Q2

REPORT INFORMATION
  Report Type: Spontaneous
  Country: CN (occurrence: CN)
  Receive Date: 20130610
  Receipt Date: 20130610
  Transmission Date: 20140414
  Serious: Yes (Other)
  Sender: FDA-Public Use
  Company Number: CN-ROCHE-1233365

PATIENT
  Age: 69 Year
  Sex: Female
  Weight: 55 kg

DRUGS (8)
  1. XELODA [Suspect]
     Indication: COLON CANCER METASTATIC
     Route: 048
     Dates: start: 20130602
  2. FURTULON [Suspect]
     Indication: COLON CANCER
     Route: 065
  3. OXALIPLATIN [Concomitant]
     Indication: METASTASES TO LIVER
  4. OXALIPLATIN [Concomitant]
     Indication: METASTASES TO LYMPH NODES
  5. IRINOTECAN [Concomitant]
     Indication: METASTASES TO LIVER
  6. IRINOTECAN [Concomitant]
     Indication: METASTASES TO LYMPH NODES
  7. FLUOROURACIL [Concomitant]
     Indication: METASTASES TO LIVER
  8. FLUOROURACIL [Concomitant]
     Indication: METASTASES TO LYMPH NODES

REACTIONS (4)
  - Metastases to liver [Not Recovered/Not Resolved]
  - Uterine cancer [Unknown]
  - Colon cancer [Unknown]
  - Metastases to lymph nodes [Unknown]
